FAERS Safety Report 8610443-8 (Version None)
Quarter: 2012Q3

REPORT INFORMATION
  Report Type: 
  Country: None (occurrence: None)
  Receive Date: 20120822
  Receipt Date: 20120820
  Transmission Date: 20120928
  Serious: No
  Sender: FDA-Public Use
  Company Number: US-PFIZER INC-2012204741

PATIENT
  Age: 51 Year
  Sex: Female
  Weight: 77.098 kg

DRUGS (3)
  1. DETROL LA [Concomitant]
     Indication: INCONTINENCE
     Dosage: 4 MG, DAILY
     Route: 048
  2. PROTONIX [Concomitant]
     Indication: GASTROOESOPHAGEAL REFLUX DISEASE
     Dosage: 40 MG, DAILY
     Route: 048
  3. CHANTIX [Suspect]
     Indication: SMOKING CESSATION THERAPY
     Dosage: 0.5 MG, DAILY
     Route: 048
     Dates: start: 20120812

REACTIONS (1)
  - NAUSEA [None]
